FAERS Safety Report 21264675 (Version 1)
Quarter: 2022Q3

REPORT INFORMATION
  Report Type: Spontaneous
  Country: US (occurrence: None)
  Receive Date: 20220826
  Receipt Date: 20220826
  Transmission Date: 20221026
  Serious: No
  Sender: FDA-Public Use
  Company Number: None

PATIENT
  Sex: Female

DRUGS (1)
  1. PLEGRIDY [Suspect]
     Active Substance: PEGINTERFERON BETA-1A
     Indication: Multiple sclerosis
     Dosage: 125MCG  EVERY 14 DAYS SUBCUTANEOUSLY?
     Route: 058
     Dates: start: 20180420

REACTIONS (2)
  - Pregnancy [None]
  - Exposure during pregnancy [None]
